FAERS Safety Report 8839922 (Version 2)
Quarter: 2013Q1

REPORT INFORMATION
  Report Type: Spontaneous
  Country: BR (occurrence: BR)
  Receive Date: 20121015
  Receipt Date: 20130311
  Transmission Date: 20140127
  Serious: Yes (Hospitalization, Other)
  Sender: FDA-Public Use
  Company Number: PHHY2012BR090196

PATIENT
  Sex: Female
  Weight: 87 kg

DRUGS (5)
  1. DIOVAN HCT [Suspect]
     Indication: HYPERTENSION
     Dosage: 80 MG, (80 MG VALS/ UNK HCTZ),UNK
  2. DIOVAN HCT [Suspect]
     Dosage: 2 DF, (160 MG VALS AND 12.5 MG HCTZ), 1OR 2 TABLET DAILY
     Route: 048
  3. AMIODARONE [Concomitant]
     Indication: ARRHYTHMIA
     Dosage: 1 DF, DAILY
     Route: 048
  4. PANTOPRAZOLE [Concomitant]
     Indication: REFLUX GASTRITIS
     Dosage: 1 DF, DAILY
     Route: 048
  5. MOTILIUM [Concomitant]
     Indication: REFLUX GASTRITIS
     Dosage: 1 DF, DAILY
     Route: 048

REACTIONS (9)
  - Cardiac disorder [Recovering/Resolving]
  - Cardiomegaly [Recovering/Resolving]
  - Fatigue [Recovering/Resolving]
  - Local swelling [Recovering/Resolving]
  - Blood pressure increased [Recovering/Resolving]
  - Respiratory tract infection [Recovering/Resolving]
  - Weight decreased [Recovering/Resolving]
  - Blood pressure diastolic abnormal [Recovering/Resolving]
  - Drug ineffective [Unknown]
